FAERS Safety Report 4714300-9 (Version None)
Quarter: 2005Q3

REPORT INFORMATION
  Report Type: 
  Country: None (occurrence: None)
  Receive Date: 20050714
  Receipt Date: 20050413
  Transmission Date: 20060218
  Serious: Yes (Hospitalization)
  Sender: FDA-Public Use
  Company Number: US-MERCK-0504USA02056

PATIENT
  Age: 67 Year
  Sex: Female
  Weight: 73 kg

DRUGS (6)
  1. VIOXX [Suspect]
     Indication: OSTEOARTHRITIS
     Route: 048
     Dates: start: 20010312, end: 20040921
  2. VIOXX [Suspect]
     Indication: PAIN
     Route: 048
     Dates: start: 20010312, end: 20040921
  3. ALEVE [Concomitant]
     Indication: ARTHRITIS
     Route: 065
     Dates: start: 20040904
  4. HYDROCODONE BITARTRATE + ACETAMINOPHEN [Concomitant]
     Indication: OSTEOARTHRITIS
     Route: 065
     Dates: start: 20040801, end: 20040801
  5. HYDROCODONE BITARTRATE + ACETAMINOPHEN [Concomitant]
     Indication: PAIN
     Route: 065
     Dates: start: 20040801, end: 20040801
  6. SYNTHROID [Concomitant]
     Indication: THYROIDECTOMY
     Route: 065
     Dates: start: 19550101

REACTIONS (13)
  - ANAEMIA [None]
  - ASTHMA [None]
  - BLOOD CHOLESTEROL INCREASED [None]
  - COUGH [None]
  - DYSPEPSIA [None]
  - EYE ALLERGY [None]
  - EYE DISORDER [None]
  - FUNGAL INFECTION [None]
  - GASTRIC DISORDER [None]
  - MIGRAINE [None]
  - MYOCARDIAL INFARCTION [None]
  - SKIN DISORDER [None]
  - SLEEP DISORDER [None]
